FAERS Safety Report 15546704 (Version 1)
Quarter: 2018Q4

REPORT INFORMATION
  Report Type: Spontaneous
  Country: US (occurrence: US)
  Receive Date: 20181024
  Receipt Date: 20181024
  Transmission Date: 20190205
  Serious: No
  Sender: FDA-Public Use
  Company Number: None

PATIENT
  Age: 32 Year
  Sex: Male
  Weight: 90.45 kg

DRUGS (10)
  1. ONDANSETRON [Concomitant]
     Active Substance: ONDANSETRON
  2. SUMATRIPTAN. [Concomitant]
     Active Substance: SUMATRIPTAN
  3. SKELAXIN [Concomitant]
     Active Substance: METAXALONE
  4. TEMAZEPAM. [Concomitant]
     Active Substance: TEMAZEPAM
  5. CELEBREX [Concomitant]
     Active Substance: CELECOXIB
  6. ONZETRA [Concomitant]
     Active Substance: SUMATRIPTAN SUCCINATE
  7. VERAPAMIL [Concomitant]
     Active Substance: VERAPAMIL HYDROCHLORIDE
  8. PROMETHAZINE [Concomitant]
     Active Substance: PROMETHAZINE\PROMETHAZINE HYDROCHLORIDE
  9. FLONASE [Concomitant]
     Active Substance: FLUTICASONE PROPIONATE
  10. AIMOVIG [Suspect]
     Active Substance: ERENUMAB-AOOE
     Indication: MIGRAINE PROPHYLAXIS
     Dosage: ?          OTHER FREQUENCY:EVERY 4 WEEKS;OTHER ROUTE:SUBCUTANEOUS INJECTION WITH AUTO-INJECTO?
     Dates: start: 20180729, end: 20180928

REACTIONS (3)
  - Amnesia [None]
  - Therapy cessation [None]
  - Disturbance in attention [None]

NARRATIVE: CASE EVENT DATE: 20180815
